FAERS Safety Report 24910257 (Version 1)
Quarter: 2025Q1

REPORT INFORMATION
  Report Type: Spontaneous
  Country: US (occurrence: None)
  Receive Date: 20250131
  Receipt Date: 20250131
  Transmission Date: 20250408
  Serious: Yes (Hospitalization)
  Sender: FDA-CTU
  Company Number: None

PATIENT
  Age: 46 Year
  Sex: Female

DRUGS (6)
  1. MYCOPHENOLIC ACID [Suspect]
     Active Substance: MYCOPHENOLIC ACID
     Indication: Renal transplant
     Dosage: FREQUENCY : TWICE A DAY;?
     Dates: start: 20230831
  2. CALC CITR+D3 TAB 200-250 [Concomitant]
  3. MULTIVITAMIN CAP [Concomitant]
  4. ACROLIMUS [Concomitant]
  5. TACROLIMUS [Concomitant]
     Active Substance: TACROLIMUS
  6. VIT B12/FA TAB [Concomitant]

REACTIONS (3)
  - Septic shock [None]
  - Type 2 diabetes mellitus [None]
  - Therapy change [None]

NARRATIVE: CASE EVENT DATE: 20250123
